FAERS Safety Report 5587511-0 (Version None)
Quarter: 2007Q4

REPORT INFORMATION
  Report Type: 
  Country: None (occurrence: None)
  Receive Date: 20071207
  Receipt Date: 20070910
  Transmission Date: 20080405
  Serious: Yes (Other)
  Sender: FDA-Public Use
  Company Number: 2007075195

PATIENT
  Sex: Male

DRUGS (2)
  1. VIAGRA [Suspect]
     Indication: ERECTILE DYSFUNCTION
     Dosage: QD
     Dates: start: 20070907
  2. ZOLOFT [Concomitant]

REACTIONS (3)
  - ERECTION INCREASED [None]
  - INSOMNIA [None]
  - PAIN [None]
